FAERS Safety Report 19735653 (Version 2)
Quarter: 2021Q3

REPORT INFORMATION
  Report Type: Report from Study
  Country: US (occurrence: US)
  Receive Date: 20210823
  Receipt Date: 20210831
  Transmission Date: 20211014
  Serious: Yes (Hospitalization)
  Sender: FDA-Public Use
  Company Number: US-GILEAD-2021-0545148

PATIENT
  Age: 77 Year
  Sex: Female
  Weight: 80.7 kg

DRUGS (5)
  1. AMBRISENTAN [Suspect]
     Active Substance: AMBRISENTAN
     Indication: PULMONARY ARTERIAL HYPERTENSION
     Dosage: UNK
     Route: 065
     Dates: start: 202107
  2. DILTIAZEM HYDROCHLORIDE. [Concomitant]
     Active Substance: DILTIAZEM HYDROCHLORIDE
  3. TYVASO [Suspect]
     Active Substance: TREPROSTINIL
     Indication: PULMONARY ARTERIAL HYPERTENSION
     Dosage: 3?9 BREATHS
     Route: 055
     Dates: start: 20190730
  4. TYVASO [Suspect]
     Active Substance: TREPROSTINIL
     Dosage: 18?54 UG
     Route: 055
  5. TYVASO [Suspect]
     Active Substance: TREPROSTINIL
     Dosage: UNK
     Route: 055

REACTIONS (5)
  - Dyspnoea [Recovering/Resolving]
  - Respiration abnormal [Unknown]
  - Blood count abnormal [Unknown]
  - Cystitis [Unknown]
  - Illness [Unknown]

NARRATIVE: CASE EVENT DATE: 20210721
